FAERS Safety Report 10984988 (Version 1)
Quarter: 2015Q2

REPORT INFORMATION
  Report Type: Spontaneous
  Country: GB (occurrence: GB)
  Receive Date: 20150403
  Receipt Date: 20150403
  Transmission Date: 20150821
  Serious: Yes (Hospitalization, Other)
  Sender: FDA-Public Use
  Company Number: GB-ASTRAZENECA-2015SE28858

PATIENT
  Age: 70 Year
  Sex: Male

DRUGS (6)
  1. EXENATIDE [Suspect]
     Active Substance: EXENATIDE
     Indication: DIABETES MELLITUS
     Route: 058
     Dates: start: 20140212, end: 20140523
  2. ASPIRIN. [Concomitant]
     Active Substance: ASPIRIN
  3. ACE INHIBITOR [Concomitant]
     Active Substance: UNSPECIFIED INGREDIENT
  4. SULPHONYLUREA UNSPECIFIED [Concomitant]
     Indication: DIABETES MELLITUS
  5. STATIN [Concomitant]
     Active Substance: UNSPECIFIED INGREDIENT
  6. GLUCOPHAGE [Concomitant]
     Active Substance: METFORMIN HYDROCHLORIDE
     Indication: DIABETES MELLITUS

REACTIONS (2)
  - Tubulointerstitial nephritis [Recovering/Resolving]
  - Acute kidney injury [Recovering/Resolving]

NARRATIVE: CASE EVENT DATE: 20140523
